FAERS Safety Report 5533910-2 (Version None)
Quarter: 2007Q4

REPORT INFORMATION
  Report Type: 
  Country: None (occurrence: None)
  Receive Date: 20071129
  Receipt Date: 20071114
  Transmission Date: 20080405
  Serious: Yes (Other)
  Sender: FDA-Public Use
  Company Number: 2007S1011923

PATIENT
  Age: 67 Year
  Sex: Male

DRUGS (4)
  1. DILTIAZEM [Suspect]
     Indication: DRUG USE FOR UNKNOWN INDICATION
     Dosage: ORAL
     Route: 048
  2. AMLODIPINE BESYLATE [Suspect]
     Indication: HYPERTENSION
     Dates: start: 20060804
  3. CANDESARTAN CILEXETIL [Concomitant]
  4. FLOMAX [Concomitant]

REACTIONS (2)
  - MIGRAINE [None]
  - VISUAL DISTURBANCE [None]
